FAERS Safety Report 24800970 (Version 1)
Quarter: 2025Q1

REPORT INFORMATION
  Report Type: Spontaneous
  Country: CN (occurrence: CN)
  Receive Date: 20250102
  Receipt Date: 20250102
  Transmission Date: 20250409
  Serious: Yes (Hospitalization)
  Sender: SANOFI AVENTIS
  Company Number: CN-SA-2024SA385927

PATIENT
  Age: 73 Year
  Sex: Male
  Weight: 59 kg

DRUGS (4)
  1. CLOPIDOGREL BISULFATE [Suspect]
     Active Substance: CLOPIDOGREL BISULFATE
     Indication: Platelet aggregation inhibition
     Dosage: 75 MG, QD
     Route: 048
     Dates: start: 20240908, end: 20240915
  2. ENOXAPARIN SODIUM [Suspect]
     Active Substance: ENOXAPARIN SODIUM
     Indication: Platelet aggregation inhibition
     Dosage: 4000 IU, BID(4000.000[IU] INTERNATION UNIT(S) BID)
     Route: 058
     Dates: start: 20240907, end: 20240908
  3. TIROFIBAN HYDROCHLORIDE [Suspect]
     Active Substance: TIROFIBAN HYDROCHLORIDE
     Indication: Platelet aggregation inhibition
     Dosage: 50 ML, QD
     Route: 041
     Dates: start: 20240907, end: 20240907
  4. ASPIRIN [Suspect]
     Active Substance: ASPIRIN
     Indication: Platelet aggregation inhibition
     Dosage: 100 MG, QD
     Route: 048
     Dates: start: 20240908, end: 20240910

REACTIONS (3)
  - Chromaturia [Unknown]
  - Occult blood positive [Unknown]
  - Urinary occult blood positive [Unknown]

NARRATIVE: CASE EVENT DATE: 20240907
